FAERS Safety Report 20194835 (Version 1)
Quarter: 2021Q4

REPORT INFORMATION
  Report Type: Spontaneous
  Country: JP (occurrence: JP)
  Receive Date: 20211216
  Receipt Date: 20211216
  Transmission Date: 20220304
  Serious: Yes (Other)
  Sender: FDA-Public Use
  Company Number: JP-PFIZER INC-202101741612

PATIENT
  Age: 67 Year
  Sex: Male

DRUGS (1)
  1. DOXAZOSIN MESYLATE [Suspect]
     Active Substance: DOXAZOSIN MESYLATE
     Dosage: 2 TABLETS DAILY IN 2 DIVIDED DOSES (MORNING AND EVENING AFTER MEALS)
     Route: 048

REACTIONS (2)
  - Shunt occlusion [Recovered/Resolved]
  - Orthostatic hypotension [Unknown]
